FAERS Safety Report 21661250 (Version 2)
Quarter: 2023Q1

REPORT INFORMATION
  Report Type: Spontaneous
  Country: PL (occurrence: PL)
  Receive Date: 20221130
  Receipt Date: 20230104
  Transmission Date: 20230418
  Serious: Yes (Hospitalization, Other)
  Sender: FDA-Public Use
  Company Number: PL-SUN PHARMACEUTICAL INDUSTRIES LTD-2022R1-366543

PATIENT
  Age: 59 Year
  Sex: Male

DRUGS (6)
  1. METFORMIN [Suspect]
     Active Substance: METFORMIN HYDROCHLORIDE
     Indication: Type 2 diabetes mellitus
     Dosage: UNK
     Route: 065
     Dates: start: 2021, end: 2021
  2. APIXABAN [Suspect]
     Active Substance: APIXABAN
     Indication: Cardiac failure
     Dosage: UNK
     Route: 065
  3. VALSARTAN [Suspect]
     Active Substance: VALSARTAN
     Indication: Acute myocardial infarction
     Dosage: UNK
     Route: 065
  4. VALSARTAN [Suspect]
     Active Substance: VALSARTAN
     Indication: Cardiac failure chronic
  5. SACUBITRIL [Suspect]
     Active Substance: SACUBITRIL
     Indication: Acute myocardial infarction
     Dosage: UNK
     Route: 065
  6. SACUBITRIL [Suspect]
     Active Substance: SACUBITRIL
     Indication: Cardiac failure chronic

REACTIONS (5)
  - Multiple organ dysfunction syndrome [Recovered/Resolved]
  - Hypotension [Unknown]
  - Cardiac failure [Unknown]
  - Drug ineffective [Unknown]
  - Condition aggravated [Unknown]
